FAERS Safety Report 12194767 (Version 1)
Quarter: 2016Q1

REPORT INFORMATION
  Report Type: Spontaneous
  Country: US (occurrence: None)
  Receive Date: 20160318
  Receipt Date: 20160318
  Transmission Date: 20160526
  Serious: Yes (Other)
  Sender: FDA-Public Use
  Company Number: None

PATIENT
  Age: 93 Year
  Sex: Male

DRUGS (1)
  1. ZYTIGA [Suspect]
     Active Substance: ABIRATERONE ACETATE
     Indication: PROSTATE CANCER
     Route: 048
     Dates: start: 20151228, end: 20160301

REACTIONS (4)
  - Diarrhoea [None]
  - Headache [None]
  - Therapy cessation [None]
  - Peripheral swelling [None]

NARRATIVE: CASE EVENT DATE: 20151228
